FAERS Safety Report 13131287 (Version 2)
Quarter: 2017Q1

REPORT INFORMATION
  Report Type: Spontaneous
  Country: NL (occurrence: NL)
  Receive Date: 20170119
  Receipt Date: 20170215
  Transmission Date: 20170428
  Serious: Yes (Other)
  Sender: FDA-Public Use
  Company Number: NL-IMPAX LABORATORIES, INC-2017-IPXL-00033

PATIENT
  Sex: Male

DRUGS (2)
  1. DIVALPROEX SODIUM ER [Suspect]
     Active Substance: DIVALPROEX SODIUM
     Dosage: 600 MG, DAILY
     Route: 065
  2. DIVALPROEX SODIUM ER [Suspect]
     Active Substance: DIVALPROEX SODIUM
     Indication: MYOCLONIC EPILEPSY
     Dosage: 280 MG, DAILY
     Route: 065

REACTIONS (3)
  - Psychomotor retardation [Not Recovered/Not Resolved]
  - Autism [Not Recovered/Not Resolved]
  - Developmental delay [Not Recovered/Not Resolved]
